FAERS Safety Report 6494896-X (Version None)
Quarter: 2009Q4

REPORT INFORMATION
  Report Type: 
  Country: None (occurrence: None)
  Receive Date: 20091214
  Receipt Date: 20090624
  Transmission Date: 20100525
  Serious: No
  Sender: FDA-Public Use
  Company Number: US-BRISTOL-MYERS SQUIBB COMPANY-14577191

PATIENT
  Age: 47 Year
  Sex: Male
  Weight: 108 kg

DRUGS (11)
  1. ABILIFY [Suspect]
     Indication: DEPRESSION
     Dates: start: 20090329, end: 20090405
  2. CARBATROL [Concomitant]
  3. PHENOBARBITAL TAB [Concomitant]
  4. DIOVAN [Concomitant]
  5. LOPRESSOR [Concomitant]
  6. HYDROCHLOROTHIAZIDE [Concomitant]
  7. MINOXIDIL [Concomitant]
  8. CLONIDINE [Concomitant]
  9. GLYBURIDE AND METFORMIN HYDROCHLORIDE [Concomitant]
     Dosage: 1 DF= 2.5/500MG
  10. NIFEDIPINE [Concomitant]
  11. LISINOPRIL [Concomitant]

REACTIONS (11)
  - AGGRESSION [None]
  - ANGER [None]
  - CONSTIPATION [None]
  - DYSPNOEA [None]
  - EMOTIONAL DISORDER [None]
  - ENERGY INCREASED [None]
  - INFLUENZA [None]
  - INSOMNIA [None]
  - NAUSEA [None]
  - OEDEMA PERIPHERAL [None]
  - VOMITING [None]
